FAERS Safety Report 17574846 (Version 2)
Quarter: 2020Q3

REPORT INFORMATION
  Report Type: Spontaneous
  Country: US (occurrence: US)
  Receive Date: 20200324
  Receipt Date: 20200910
  Transmission Date: 20201102
  Serious: Yes (Hospitalization, Other)
  Sender: FDA-Public Use
  Company Number: US-GILEAD-2020-0455882

PATIENT
  Sex: Female
  Weight: 126.53 kg

DRUGS (18)
  1. BUSPIRONE [Concomitant]
     Active Substance: BUSPIRONE HYDROCHLORIDE
  2. LIPITOR [Concomitant]
     Active Substance: ATORVASTATIN CALCIUM
  3. NORCO [Concomitant]
     Active Substance: ACETAMINOPHEN\HYDROCODONE BITARTRATE
  4. OLANZAPINE. [Concomitant]
     Active Substance: OLANZAPINE
  5. ATRIPLA [Suspect]
     Active Substance: EFAVIRENZ\EMTRICITABINE\TENOFOVIR DISOPROXIL FUMARATE
     Indication: HIV INFECTION
     Dosage: UNK
     Route: 048
     Dates: start: 2010
  6. ZANAFLEX [Concomitant]
     Active Substance: TIZANIDINE HYDROCHLORIDE
  7. CYCLOBENZAPRINE. [Concomitant]
     Active Substance: CYCLOBENZAPRINE
  8. CITALOPRAM [Concomitant]
     Active Substance: CITALOPRAM HYDROBROMIDE
  9. DOXEPIN [Concomitant]
     Active Substance: DOXEPIN
  10. ULTRAM [Concomitant]
     Active Substance: TRAMADOL HYDROCHLORIDE
  11. COMBIVIR [Concomitant]
     Active Substance: LAMIVUDINE\ZIDOVUDINE
  12. SUSTIVA [Concomitant]
     Active Substance: EFAVIRENZ
  13. KLONOPIN [Concomitant]
     Active Substance: CLONAZEPAM
  14. NEURONTIN [Concomitant]
     Active Substance: GABAPENTIN
  15. PREDNISONE. [Concomitant]
     Active Substance: PREDNISONE
  16. LAMICTAL [Concomitant]
     Active Substance: LAMOTRIGINE
  17. VIREAD [Suspect]
     Active Substance: TENOFOVIR DISOPROXIL FUMARATE
     Indication: HIV INFECTION
     Dosage: UNK
     Route: 048
     Dates: start: 2010, end: 2010
  18. MINIPRESS [Concomitant]
     Active Substance: PRAZOSIN HYDROCHLORIDE

REACTIONS (7)
  - Pain [Not Recovered/Not Resolved]
  - Anxiety [Not Recovered/Not Resolved]
  - Renal failure [Unknown]
  - Nephropathy [Unknown]
  - Emotional distress [Not Recovered/Not Resolved]
  - Economic problem [Unknown]
  - Anhedonia [Not Recovered/Not Resolved]

NARRATIVE: CASE EVENT DATE: 2010
